FAERS Safety Report 7050252-7 (Version None)
Quarter: 2010Q4

REPORT INFORMATION
  Report Type: 
  Country: None (occurrence: None)
  Receive Date: 20101018
  Receipt Date: 20101012
  Transmission Date: 20110411
  Serious: Yes (Other)
  Sender: FDA-Public Use
  Company Number: US-B.I. PHARMACEUTICALS,INC./RIDGEFIELD-2010-BP-04338BP

PATIENT
  Sex: Female
  Weight: 55.8 kg

DRUGS (9)
  1. CATAPRES-TTS-1 [Suspect]
     Indication: HYPERTENSION
     Route: 061
  2. CLONIDINE HCL [Suspect]
     Indication: HYPERTENSION
     Route: 048
     Dates: start: 20070101
  3. LISINOPRIL [Suspect]
     Indication: HYPERTENSION
     Dosage: 30 MG
     Dates: start: 20040101, end: 20100419
  4. FUROSEMIDE [Concomitant]
  5. MINOXIDIL [Concomitant]
  6. DILTIAZEM [Concomitant]
  7. ACIPHEX [Concomitant]
  8. RANITIDINE [Concomitant]
     Dosage: 150 MG
     Dates: start: 20090101
  9. NEXIUM [Concomitant]
     Dosage: 40 MG

REACTIONS (10)
  - BLOOD PRESSURE FLUCTUATION [None]
  - BLOOD PRESSURE INCREASED [None]
  - BLOOD PRESSURE SYSTOLIC INCREASED [None]
  - COUGH [None]
  - DRUG INEFFECTIVE [None]
  - GASTROOESOPHAGEAL REFLUX DISEASE [None]
  - HYPERTENSION [None]
  - RENAL ARTERY OCCLUSION [None]
  - RENAL DISORDER [None]
  - RENAL FAILURE CHRONIC [None]
